FAERS Safety Report 5119976-2 (Version None)
Quarter: 2006Q3

REPORT INFORMATION
  Report Type: 
  Country: None (occurrence: None)
  Receive Date: 20060929
  Receipt Date: 20060919
  Transmission Date: 20061208
  Serious: Yes (Hospitalization, Other)
  Sender: FDA-Public Use
  Company Number: 230057

PATIENT
  Age: 81 Year
  Sex: Female

DRUGS (10)
  1. GRTPA (ALTEPLASE) PWDR + SOLVENT, INFUSION SOLN [Suspect]
     Indication: CEREBRAL ARTERY EMBOLISM
     Dosage: 28.8 MG, SINGLE, INTRAVENOUS
     Route: 042
     Dates: start: 20060512, end: 20060512
  2. RADICUT (EDARAVONE) [Concomitant]
  3. GLYCEOL (GLYCERIN) [Concomitant]
  4. VERAPAMIL [Concomitant]
  5. METILDIGOXIN (METILDIGOXIN) [Concomitant]
  6. HEPARIN [Concomitant]
  7. LAFUTIDINE (LAFUTIDINE) [Concomitant]
  8. MAGNESIUM OXIDE (MAGNESIUM OXIDE) [Concomitant]
  9. WARFARIN SODIUM [Concomitant]
  10. CEFOTIAM (CEFOTIAM HYDROCHLORIDE) [Concomitant]

REACTIONS (9)
  - ACTIVATED PARTIAL THROMBOPLASTIN TIME PROLONGED [None]
  - BLOOD GLUCOSE INCREASED [None]
  - BLOOD PRESSURE INCREASED [None]
  - HAEMOGLOBIN DECREASED [None]
  - HAEMORRHAGIC CEREBRAL INFARCTION [None]
  - PLATELET COUNT DECREASED [None]
  - RED BLOOD CELL COUNT DECREASED [None]
  - TRANSIENT ISCHAEMIC ATTACK [None]
  - VOCAL CORD PARALYSIS [None]
